FAERS Safety Report 18162203 (Version 9)
Quarter: 2021Q1

REPORT INFORMATION
  Report Type: Report from Study
  Country: US (occurrence: US)
  Receive Date: 20200818
  Receipt Date: 20210315
  Transmission Date: 20210419
  Serious: Yes (Other)
  Sender: FDA-Public Use
  Company Number: NVSC2020US227116

PATIENT
  Age: 82 Year
  Sex: Male

DRUGS (4)
  1. ENTRESTO [Suspect]
     Active Substance: SACUBITRIL\VALSARTAN
     Dosage: 1 DF (97/103 MG), BID
     Route: 048
  2. ENTRESTO [Suspect]
     Active Substance: SACUBITRIL\VALSARTAN
     Dosage: UNK UNK, BID
     Route: 048
  3. ENTRESTO [Suspect]
     Active Substance: SACUBITRIL\VALSARTAN
     Dosage: 1 DF  (49/51 MG), BID
     Route: 048
  4. ENTRESTO [Suspect]
     Active Substance: SACUBITRIL\VALSARTAN
     Indication: PRODUCT USED FOR UNKNOWN INDICATION
     Dosage: 1 DF(24/26 MG), BID
     Route: 048

REACTIONS (21)
  - Blood pressure systolic increased [Recovering/Resolving]
  - Prostate cancer stage II [Unknown]
  - Bone cancer [Unknown]
  - Blood triglycerides increased [Unknown]
  - Back pain [Unknown]
  - Blood sodium increased [Unknown]
  - Chest discomfort [Unknown]
  - Dysstasia [Unknown]
  - Decreased activity [Unknown]
  - Cough [Unknown]
  - Throat clearing [Unknown]
  - Depressed mood [Unknown]
  - Arthralgia [Unknown]
  - Arthritis [Unknown]
  - Hypersensitivity [Unknown]
  - Weight increased [Unknown]
  - Gastroenteritis viral [Recovered/Resolved]
  - Rhinorrhoea [Unknown]
  - Psychomotor hyperactivity [Unknown]
  - Nasal congestion [Unknown]
  - Blood pressure fluctuation [Unknown]
